FAERS Safety Report 15710105 (Version 2)
Quarter: 2018Q4

REPORT INFORMATION
  Report Type: Spontaneous
  Country: US (occurrence: US)
  Receive Date: 20181211
  Receipt Date: 20181211
  Transmission Date: 20190205
  Serious: Yes (Life-Threatening, Other)
  Sender: FDA-Public Use
  Company Number: US-PFIZER INC-2018499230

PATIENT
  Age: 47 Year
  Sex: Male

DRUGS (3)
  1. DROSTANOLONE PROPIONATE [Suspect]
     Active Substance: DROMOSTANOLONE PROPIONATE
     Indication: STEROID THERAPY
     Dosage: 3 DF, WEEKLY (3 TIMES A WEEK)
  2. TRENBOLONE ACETATE [Suspect]
     Active Substance: TRENBOLONE ACETATE
     Indication: STEROID THERAPY
     Dosage: 3 DF, WEEKLY (3 TIMES A WEEK)
  3. TESTOSTERONE CIPIONATE [Suspect]
     Active Substance: TESTOSTERONE
     Indication: STEROID THERAPY
     Dosage: 3 DF, WEEKLY (3 TIMES A WEEK)

REACTIONS (2)
  - Diffuse alveolar damage [Recovered/Resolved]
  - Product use in unapproved indication [Unknown]
